FAERS Safety Report 11987266 (Version 1)
Quarter: 2016Q1

REPORT INFORMATION
  Report Type: Report from Study
  Country: US (occurrence: US)
  Receive Date: 20160202
  Receipt Date: 20160202
  Transmission Date: 20160526
  Serious: No
  Sender: FDA-Public Use
  Company Number: US-ABBVIE-15K-163-1334820-00

PATIENT
  Sex: Female

DRUGS (2)
  1. HUMIRA [Suspect]
     Active Substance: ADALIMUMAB
     Route: 065
     Dates: start: 201502
  2. HUMIRA [Suspect]
     Active Substance: ADALIMUMAB
     Indication: CROHN^S DISEASE
     Route: 065
     Dates: start: 20140317, end: 20141222

REACTIONS (6)
  - Pneumonia [Recovered/Resolved]
  - Chest discomfort [Unknown]
  - Respiratory tract congestion [Unknown]
  - Colonoscopy abnormal [Unknown]
  - Nasopharyngitis [Unknown]
  - Influenza [Recovered/Resolved]
